FAERS Safety Report 25097849 (Version 1)
Quarter: 2025Q1

REPORT INFORMATION
  Report Type: Spontaneous
  Country: DE (occurrence: DE)
  Receive Date: 20250320
  Receipt Date: 20250320
  Transmission Date: 20250409
  Serious: Yes (Other)
  Sender: ROCHE
  Company Number: DE-002147023-NVSC2025DE029385

PATIENT
  Sex: Female

DRUGS (3)
  1. XOLAIR [Suspect]
     Active Substance: OMALIZUMAB
     Indication: Urticaria
     Dosage: 300 MG, QMO
     Route: 065
  2. XOLAIR [Suspect]
     Active Substance: OMALIZUMAB
     Indication: Chronic spontaneous urticaria
     Dosage: 300 MG, QMO
     Route: 065
     Dates: start: 2024
  3. XOLAIR [Suspect]
     Active Substance: OMALIZUMAB
     Dosage: 300 MG, QMO
     Route: 065
     Dates: start: 20250227

REACTIONS (10)
  - Angioedema [Recovered/Resolved]
  - Urticaria [Unknown]
  - Condition aggravated [Unknown]
  - Rash [Unknown]
  - Chronic spontaneous urticaria [Recovered/Resolved]
  - Disease recurrence [Recovered/Resolved]
  - Device breakage [Unknown]
  - Product packaging issue [Unknown]
  - Product storage error [Unknown]
  - Drug ineffective [Unknown]

NARRATIVE: CASE EVENT DATE: 20241201
